FAERS Safety Report 25761557 (Version 1)
Quarter: 2025Q3

REPORT INFORMATION
  Report Type: Spontaneous
  Country: EU (occurrence: EU)
  Receive Date: 20250904
  Receipt Date: 20250904
  Transmission Date: 20251020
  Serious: Yes (Death)
  Sender: ALEXION PHARMACEUTICALS
  Company Number: EU-ASTRAZENECA-202509EEA001724IT

PATIENT
  Sex: Female

DRUGS (3)
  1. TRUQAP [Suspect]
     Active Substance: CAPIVASERTIB
     Indication: HER2 negative breast cancer
     Route: 065
     Dates: start: 20250601, end: 20250801
  2. FULVESTRANT [Suspect]
     Active Substance: FULVESTRANT
     Indication: HER2 negative breast cancer
     Route: 065
     Dates: start: 20250601, end: 20250801
  3. FULVESTRANT [Suspect]
     Active Substance: FULVESTRANT

REACTIONS (1)
  - Malignant neoplasm progression [Fatal]
